FAERS Safety Report 11507848 (Version 1)
Quarter: 2015Q3

REPORT INFORMATION
  Report Type: Spontaneous
  Country: US (occurrence: US)
  Receive Date: 20150903
  Receipt Date: 20150903
  Transmission Date: 20151125
  Serious: No
  Sender: FDA-Public Use
  Company Number: US-ELI_LILLY_AND_COMPANY-US200910002082

PATIENT
  Age: 57 Year
  Sex: Female

DRUGS (10)
  1. NASAL SPRAY [Concomitant]
     Active Substance: UNSPECIFIED INGREDIENT
  2. DILTIAZEM [Concomitant]
     Active Substance: DILTIAZEM
  3. ASPIRIN. [Concomitant]
     Active Substance: ASPIRIN
  4. GABAPENTIN. [Concomitant]
     Active Substance: GABAPENTIN
     Indication: PAIN IN EXTREMITY
  5. BACLOFEN. [Concomitant]
     Active Substance: BACLOFEN
  6. PRAVASTATIN [Concomitant]
     Active Substance: PRAVASTATIN\PRAVASTATIN SODIUM
  7. LISINOPRIL. [Concomitant]
     Active Substance: LISINOPRIL
  8. PRILOSEC [Concomitant]
     Active Substance: OMEPRAZOLE MAGNESIUM
  9. HUMALOG [Suspect]
     Active Substance: INSULIN LISPRO
     Dates: start: 2007
  10. HYDROCODONE [Concomitant]
     Active Substance: HYDROCODONE

REACTIONS (5)
  - Drug dose omission [Not Recovered/Not Resolved]
  - Pain in extremity [Not Recovered/Not Resolved]
  - Blood glucose increased [Not Recovered/Not Resolved]
  - Arthritis [Not Recovered/Not Resolved]
  - Pain [Not Recovered/Not Resolved]

NARRATIVE: CASE EVENT DATE: 200907
